FAERS Safety Report 7609837-9 (Version None)
Quarter: 2011Q3

REPORT INFORMATION
  Report Type: 
  Country: None (occurrence: None)
  Receive Date: 20110714
  Receipt Date: 20110712
  Transmission Date: 20111222
  Serious: Yes (Death, Hospitalization, Other)
  Sender: FDA-Public Use
  Company Number: PL-PFIZER INC-2011153072

PATIENT
  Age: 69 Year
  Sex: Female

DRUGS (10)
  1. VENLAFAXINE HCL [Suspect]
     Indication: DEPRESSION
     Dosage: 225 MG, UNK
  2. ESCITALOPRAM [Suspect]
     Indication: DEPRESSION
     Dosage: 20 MG, UNK
  3. QUETIAPINE [Suspect]
     Dosage: 300 MG, UNK
  4. OLANZAPINE [Suspect]
     Indication: PSYCHOTIC DISORDER
     Dosage: 5 MG, UNK
  5. REBOXETINE [Suspect]
     Indication: DEPRESSION
     Dosage: 4 MG, UNK
  6. QUETIAPINE [Suspect]
     Indication: PSYCHOTIC DISORDER
     Dosage: 100 MG, UNK
  7. PAROXETINE HCL [Suspect]
     Indication: DEPRESSION
     Dosage: 20 MG, UNK
  8. SERTRALINE HYDROCHLORIDE [Suspect]
     Indication: DEPRESSION
     Dosage: 100 MG, UNK
  9. MIRTAZAPINE [Suspect]
     Indication: DEPRESSION
     Dosage: 30 MG, UNK
  10. MIRTAZAPINE [Suspect]
     Dosage: 45 MG, UNK

REACTIONS (3)
  - DEEP VEIN THROMBOSIS [None]
  - ANTIPHOSPHOLIPID ANTIBODIES [None]
  - PULMONARY EMBOLISM [None]
